FAERS Safety Report 4518714-1 (Version None)
Quarter: 2004Q4

REPORT INFORMATION
  Report Type: 
  Country: None (occurrence: None)
  Receive Date: 20041201
  Receipt Date: 20021115
  Transmission Date: 20050328
  Serious: Yes (Hospitalization)
  Sender: FDA-Public Use
  Company Number: 2002-BP-03366BP

PATIENT
  Age: 56 Year
  Sex: Male

DRUGS (11)
  1. MICARDIS [Suspect]
     Indication: CEREBROVASCULAR ACCIDENT
     Dosage: 80 MG (80 MG, 1 TABLET QD), PO
     Route: 048
     Dates: start: 20020603
  2. MICARDIS [Suspect]
     Indication: MYOCARDIAL INFARCTION
     Dosage: 80 MG (80 MG, 1 TABLET QD), PO
     Route: 048
     Dates: start: 20020603
  3. RAMIPRIL [Suspect]
     Indication: CEREBROVASCULAR ACCIDENT PROPHYLAXIS
     Dosage: 80 MG (80 MG, 1 TABLET, QD), PO
     Route: 048
     Dates: start: 20020603
  4. RAMIPRIL [Suspect]
     Indication: MYOCARDIAL INFARCTION
     Dosage: 80 MG (80 MG, 1 TABLET, QD), PO
     Route: 048
     Dates: start: 20020603
  5. METORPOLOL (METOPROLOL) [Concomitant]
  6. ASPIRIN [Concomitant]
  7. RANITIDINE [Concomitant]
  8. ATORVASTATIN [Concomitant]
  9. TRIAMTERENE (TRIAMTERENE) [Concomitant]
  10. LISINOPRIL [Concomitant]
  11. HYDROCHLOROTHIAZIDE [Concomitant]

REACTIONS (2)
  - DIZZINESS [None]
  - HYPOTENSION [None]
